FAERS Safety Report 6048211-6 (Version None)
Quarter: 2009Q1

REPORT INFORMATION
  Report Type: 
  Country: None (occurrence: None)
  Receive Date: 20090121
  Receipt Date: 20090121
  Transmission Date: 20090719
  Serious: Yes (Hospitalization)
  Sender: FDA-Public Use
  Company Number: None

PATIENT
  Age: 24 Year
  Sex: Female

DRUGS (1)
  1. IVIG 20G [Suspect]
     Indication: BLOOD IMMUNOGLOBULIN G DECREASED
     Dosage: 24G Q 3 WEEKS IV
     Route: 042

REACTIONS (3)
  - CHEST DISCOMFORT [None]
  - DIZZINESS [None]
  - PRURITUS [None]
